FAERS Safety Report 14145104 (Version 1)
Quarter: 2017Q4

REPORT INFORMATION
  Report Type: Spontaneous
  Country: US (occurrence: US)
  Receive Date: 20171031
  Receipt Date: 20171031
  Transmission Date: 20180321
  Serious: No
  Sender: FDA-Public Use
  Company Number: US-SHIRE-US201720282

PATIENT
  Age: 86 Year
  Sex: Female
  Weight: 51.7 kg

DRUGS (2)
  1. XIIDRA [Suspect]
     Active Substance: LIFITEGRAST
     Dosage: UNK
     Dates: start: 201703
  2. XIIDRA [Suspect]
     Active Substance: LIFITEGRAST
     Indication: PRODUCT USED FOR UNKNOWN INDICATION
     Dosage: 1 GTT, 2X/DAY:BID
     Route: 047
     Dates: start: 201610, end: 201702

REACTIONS (8)
  - Eye disorder [Unknown]
  - Vision blurred [Unknown]
  - Instillation site reaction [Unknown]
  - Dysgeusia [Unknown]
  - Feeling abnormal [Unknown]
  - Drug ineffective [Unknown]
  - Lacrimation increased [Unknown]
  - Instillation site pain [Unknown]
